FAERS Safety Report 17164349 (Version 2)
Quarter: 2021Q4

REPORT INFORMATION
  Report Type: Report from Study
  Country: DE (occurrence: DE)
  Receive Date: 20191217
  Receipt Date: 20211220
  Transmission Date: 20220303
  Serious: Yes (Death)
  Sender: FDA-Public Use
  Company Number: DE-PFIZER INC-2019538225

PATIENT

DRUGS (2)
  1. OXALIPLATIN [Suspect]
     Active Substance: OXALIPLATIN
     Indication: Rectal adenocarcinoma
     Dosage: 50 MG/M2, CYCLIC (2-HOUR INFUSION ON DAYS 1,8, 22, AND 29)
  2. FLUOROURACIL [Suspect]
     Active Substance: FLUOROURACIL
     Indication: Rectal adenocarcinoma
     Dosage: 250 MG/M2, CYCLIC  (ON DAYS 1 TO 14 AND 22 TO 35)

REACTIONS (3)
  - Infection [Fatal]
  - Pulmonary embolism [Fatal]
  - Brain oedema [Fatal]
